FAERS Safety Report 5143061-7 (Version None)
Quarter: 2006Q4

REPORT INFORMATION
  Report Type: 
  Country: None (occurrence: None)
  Receive Date: 20061101
  Receipt Date: 20061101
  Transmission Date: 20070319
  Serious: Yes (Hospitalization)
  Sender: FDA-Public Use
  Company Number: None

PATIENT
  Age: 72 Year
  Sex: Male
  Weight: 106.1417 kg

DRUGS (15)
  1. WARFARIN SODIUM [Suspect]
     Indication: ATRIAL FIBRILLATION
     Dosage: 5 MG EVERY EVENING PO
     Route: 048
     Dates: start: 20060702, end: 20060714
  2. ALBUT/IPRATROP-COMBIVENT [Concomitant]
  3. ALBUTEROL [Concomitant]
  4. AMLODIPINE BESYLATE [Concomitant]
  5. ANALGESIC CREAM [Concomitant]
  6. ASPIRIN [Concomitant]
  7. CICLOPIROX OLAMINE [Concomitant]
  8. CLOPIDOGREL BISULFATE [Concomitant]
  9. DIAZEPAM [Concomitant]
  10. ETODOLAC [Concomitant]
  11. GUAIFENESIN 100MG, COD 10MG/5ML [Concomitant]
  12. IPRATROPIUM BR [Concomitant]
  13. LISINOPRIL [Concomitant]
  14. METOPROLOL TARTRATE [Concomitant]
  15. MICONAZOLE NITRATE [Concomitant]

REACTIONS (5)
  - GASTROINTESTINAL HAEMORRHAGE [None]
  - HAEMATOCRIT DECREASED [None]
  - HAEMOGLOBIN DECREASED [None]
  - IMPAIRED GASTRIC EMPTYING [None]
  - INTERNATIONAL NORMALISED RATIO INCREASED [None]
